FAERS Safety Report 16312138 (Version 1)
Quarter: 2019Q2

REPORT INFORMATION
  Report Type: Spontaneous
  Country: FR (occurrence: FR)
  Receive Date: 20190515
  Receipt Date: 20190515
  Transmission Date: 20190711
  Serious: Yes (Other)
  Sender: FDA-Public Use
  Company Number: FR-ACCORD-127072

PATIENT
  Age: 81 Year
  Sex: Female

DRUGS (3)
  1. LOVENOX [Suspect]
     Active Substance: ENOXAPARIN SODIUM
     Indication: COAGULOPATHY
     Route: 058
     Dates: start: 20190114
  2. FUROSEMIDE. [Suspect]
     Active Substance: FUROSEMIDE
     Indication: HYPERTENSION
     Route: 058
     Dates: start: 20181231
  3. OXYCODONE [Suspect]
     Active Substance: OXYCODONE
     Indication: PAIN
     Route: 058
     Dates: start: 20181231

REACTIONS (2)
  - Administration site necrosis [Not Recovered/Not Resolved]
  - Administration site reaction [Not Recovered/Not Resolved]

NARRATIVE: CASE EVENT DATE: 20190123
